FAERS Safety Report 24362196 (Version 1)
Quarter: 2024Q3

REPORT INFORMATION
  Report Type: Spontaneous
  Country: US (occurrence: US)
  Receive Date: 20240925
  Receipt Date: 20240925
  Transmission Date: 20241017
  Serious: Yes (Hospitalization, Other)
  Sender: VERTEX
  Company Number: US-VERTEX PHARMACEUTICALS-2024-014827

PATIENT
  Age: 15 Year
  Sex: Female

DRUGS (5)
  1. SYMDEKO [Suspect]
     Active Substance: IVACAFTOR\TEZACAFTOR
     Indication: Cystic fibrosis
     Dosage: 1 YELLOW TABLET (100MG/150MG) IN MORNING AND 1 BLUE TABLET (150MG) IN EVENING, BID
     Route: 048
  2. AZTREONAM LYSINE [Suspect]
     Active Substance: AZTREONAM LYSINE
     Indication: Cystic fibrosis lung
     Dosage: 75 MG, TID (28 DAYS ON AND 28 DAYS OFF)
  3. PULMOZYME [Concomitant]
     Active Substance: DORNASE ALFA
  4. CAYSTON [Concomitant]
     Active Substance: AZTREONAM
  5. SERTRALINE HYDROCHLORIDE [Concomitant]
     Active Substance: SERTRALINE HYDROCHLORIDE
     Dosage: 200 MG CAPSULE

REACTIONS (1)
  - Infective pulmonary exacerbation of cystic fibrosis [Not Recovered/Not Resolved]

NARRATIVE: CASE EVENT DATE: 20240911
